FAERS Safety Report 4840142-X (Version None)
Quarter: 2005Q4

REPORT INFORMATION
  Report Type: 
  Country: None (occurrence: None)
  Receive Date: 20051129
  Receipt Date: 20051116
  Transmission Date: 20060501
  Serious: Yes (Other)
  Sender: FDA-Public Use
  Company Number: JP-AVENTIS-200513535JP

PATIENT
  Age: 1 Hour
  Weight: 3.3 kg

DRUGS (3)
  1. LANTUS [Suspect]
     Route: 058
  2. INSULIN LISPRO [Concomitant]
     Dosage: DOSE: 8-3-4; DOSE UNIT: UNITS
  3. NPH INSULIN [Concomitant]

REACTIONS (3)
  - CAESAREAN SECTION [None]
  - DRUG EXPOSURE DURING PREGNANCY [None]
  - HYPOGLYCAEMIA NEONATAL [None]
